FAERS Safety Report 7369336-9 (Version None)
Quarter: 2011Q1

REPORT INFORMATION
  Report Type: 
  Country: None (occurrence: None)
  Receive Date: 20110323
  Receipt Date: 20110314
  Transmission Date: 20110831
  Serious: Yes (Death)
  Sender: FDA-Public Use
  Company Number: B0707556A

PATIENT
  Age: 20 Year
  Sex: Female

DRUGS (6)
  1. GEMCITABINE [Concomitant]
  2. CISPLATIN [Suspect]
  3. VINORELBINE [Suspect]
  4. THIOTEPA [Concomitant]
  5. DEXAMETHASONE [Concomitant]
  6. TOPOTECAN [Suspect]
     Dosage: 1MGM2 PER DAY
     Route: 065

REACTIONS (4)
  - HYPERAMMONAEMIA [None]
  - SOMNOLENCE [None]
  - NEUTROPENIA [None]
  - CONVULSION [None]
